FAERS Safety Report 9417676 (Version 1)
Quarter: 2013Q3

REPORT INFORMATION
  Report Type: Spontaneous
  Country: CN (occurrence: None)
  Receive Date: 20130719
  Receipt Date: 20130719
  Transmission Date: 20140515
  Serious: Yes (Hospitalization)
  Sender: FDA-Public Use
  Company Number: SYM-2013-06687

PATIENT
  Age: 63 Year
  Sex: Male

DRUGS (4)
  1. 5 FU [Suspect]
     Indication: COLORECTAL CANCER METASTATIC
     Dosage: 750 MG, EVERY OTHER WEEK
     Route: 040
     Dates: start: 20130311, end: 20130311
  2. BLINDED THERAPY )OTHER THERAPEUTIC PRODUCTS) (SOLUTIONS FOR INFUSION [Suspect]
     Indication: COLORECTAL CANCER METASTATIC
     Dosage: 316MG, EVERY OTHER WEEK
     Route: 042
     Dates: start: 20130311, end: 20130311
  3. IRINOTECAN (IRINOTECAN) (SOLUTION FOR INFUSION) (IRINOTECAN) [Suspect]
     Indication: COLORECTAL CANCER METASTATIC
     Dosage: 338MG EVERY OTHER WEEK INTRAVENOUS
     Route: 042
     Dates: start: 20130311, end: 20130311
  4. LEUCOVORIN (FOLINIC ACID) (SOLUTION FOR INFUSION) (FOLINIC ACID) [Suspect]
     Dates: start: 20130311, end: 20130311

REACTIONS (3)
  - Intestinal obstruction [None]
  - Abdominal pain [None]
  - Vomiting [None]
